FAERS Safety Report 15852762 (Version 1)
Quarter: 2019Q1

REPORT INFORMATION
  Report Type: Spontaneous
  Country: US (occurrence: US)
  Receive Date: 20190122
  Receipt Date: 20190122
  Transmission Date: 20190417
  Serious: No
  Sender: FDA-Public Use
  Company Number: US-PERRIGO-18US007949

PATIENT
  Age: 10 Year
  Sex: Female
  Weight: 33.11 kg

DRUGS (2)
  1. PSYCHOSTIMULANTS, AGENTS USED FOR ADHD AND NO [Concomitant]
     Indication: ATTENTION DEFICIT/HYPERACTIVITY DISORDER
     Dosage: UNK
     Route: 065
  2. PERMETHRIN. [Suspect]
     Active Substance: PERMETHRIN
     Indication: LICE INFESTATION
     Dosage: 1 APPLICATION, QD
     Route: 061
     Dates: start: 20180805, end: 20180806

REACTIONS (1)
  - Inappropriate schedule of product administration [Recovered/Resolved]

NARRATIVE: CASE EVENT DATE: 20180806
